FAERS Safety Report 8015817-4 (Version None)
Quarter: 2011Q4

REPORT INFORMATION
  Report Type: 
  Country: None (occurrence: None)
  Receive Date: 20111230
  Receipt Date: 20111220
  Transmission Date: 20120403
  Serious: Yes (Other)
  Sender: FDA-Public Use
  Company Number: CA-ROCHE-GNE301475

PATIENT
  Sex: Male
  Weight: 77.082 kg

DRUGS (1)
  1. XOLAIR [Suspect]
     Indication: ASTHMA
     Dosage: 150 MG, 1/MONTH
     Route: 058
     Dates: start: 20050708

REACTIONS (11)
  - ASTHMA [None]
  - HYPERTENSION [None]
  - COUGH [None]
  - NASAL CONGESTION [None]
  - HEADACHE [None]
  - SINUS HEADACHE [None]
  - BRONCHITIS [None]
  - NASOPHARYNGITIS [None]
  - CHEST DISCOMFORT [None]
  - PERIPHERAL COLDNESS [None]
  - LYMPHADENOPATHY [None]
